FAERS Safety Report 12904478 (Version 2)
Quarter: 2016Q4

REPORT INFORMATION
  Report Type: Spontaneous
  Country: CN (occurrence: CN)
  Receive Date: 20161102
  Receipt Date: 20161110
  Transmission Date: 20170207
  Serious: No
  Sender: FDA-Public Use
  Company Number: CN-JNJFOC-20161027593

PATIENT

DRUGS (2)
  1. ITRACONAZOLE. [Suspect]
     Active Substance: ITRACONAZOLE
     Indication: PULMONARY MYCOSIS
     Dosage: DOSE IS 0.2 G/DAY FOR TREATMENT GROUP??TOTAL COURSE OF TREATMENT OF 1 MONTH
     Route: 065
  2. COTRIMOXAZOLE [Suspect]
     Active Substance: SULFAMETHOXAZOLE\TRIMETHOPRIM
     Indication: PULMONARY MYCOSIS
     Route: 065

REACTIONS (1)
  - Liver function test abnormal [Unknown]
